FAERS Safety Report 16262927 (Version 1)
Quarter: 2019Q2

REPORT INFORMATION
  Report Type: Spontaneous
  Country: US (occurrence: US)
  Receive Date: 20190502
  Receipt Date: 20190502
  Transmission Date: 20190711
  Serious: Yes (Other)
  Sender: FDA-Public Use
  Company Number: US-GLAXOSMITHKLINE-US2019075920

PATIENT
  Age: 38 Year
  Sex: Female

DRUGS (1)
  1. BENLYSTA [Suspect]
     Active Substance: BELIMUMAB
     Indication: PRODUCT USED FOR UNKNOWN INDICATION
     Dosage: 200 MG, WE
     Route: 058
     Dates: start: 2018

REACTIONS (13)
  - Injection site reaction [Recovered/Resolved]
  - Pharyngeal erythema [Unknown]
  - Productive cough [Unknown]
  - Urticaria [Recovered/Resolved]
  - Hyperhidrosis [Recovered/Resolved]
  - Throat irritation [Recovering/Resolving]
  - Cellulitis [Unknown]
  - Cold sweat [Recovered/Resolved]
  - Cough [Not Recovered/Not Resolved]
  - Condition aggravated [Unknown]
  - Administration site warmth [Unknown]
  - Pyrexia [Recovered/Resolved]
  - Chills [Recovered/Resolved]

NARRATIVE: CASE EVENT DATE: 2018
